FAERS Safety Report 6078542-5 (Version None)
Quarter: 2009Q1

REPORT INFORMATION
  Report Type: 
  Country: None (occurrence: None)
  Receive Date: 20090212
  Receipt Date: 20090212
  Transmission Date: 20090719
  Serious: Yes (Other)
  Sender: FDA-Public Use
  Company Number: None

PATIENT
  Age: 52 Year
  Sex: Male
  Weight: 120.2032 kg

DRUGS (1)
  1. SIMVASTATIN [Suspect]
     Indication: DRUG THERAPY CHANGED
     Dosage: 1 40MG TABLET DAILY PO
     Route: 048
     Dates: start: 20090127, end: 20090211

REACTIONS (2)
  - MUSCLE SPASMS [None]
  - MYALGIA [None]
